FAERS Safety Report 7483010-X (Version None)
Quarter: 2011Q2

REPORT INFORMATION
  Report Type: 
  Country: None (occurrence: None)
  Receive Date: 20110516
  Receipt Date: 20110414
  Transmission Date: 20111010
  Serious: No
  Sender: FDA-Public Use
  Company Number: US-BAYER-2011-033496

PATIENT
  Age: 73 Year
  Sex: Male
  Weight: 111 kg

DRUGS (4)
  1. ATENOLOL [Concomitant]
     Dosage: 50 MG, UNK
  2. MICARDIS [Concomitant]
  3. ALEVE (CAPLET) [Suspect]
     Indication: PRODUCT USED FOR UNKNOWN INDICATION
     Dosage: 1 DF, ONCE
     Route: 048
     Dates: start: 20110414, end: 20110414
  4. PLAVIX [Concomitant]

REACTIONS (1)
  - PRURITUS [None]
